FAERS Safety Report 25203864 (Version 2)
Quarter: 2025Q2

REPORT INFORMATION
  Report Type: Spontaneous
  Country: FR (occurrence: FR)
  Receive Date: 20250416
  Receipt Date: 20250503
  Transmission Date: 20250716
  Serious: Yes (Other)
  Sender: GLAXOSMITHKLINE
  Company Number: None

PATIENT

DRUGS (2)
  1. SERETIDE [Suspect]
     Active Substance: FLUTICASONE PROPIONATE\SALMETEROL XINAFOATE
     Indication: Maternal exposure during pregnancy
     Dosage: 1 DF, QOD 1 DOSAGE FORM, EVERY OTHER DAY
     Route: 064
     Dates: start: 202310, end: 2024
  2. CETIRIZINE HYDROCHLORIDE [Suspect]
     Active Substance: CETIRIZINE HYDROCHLORIDE
     Indication: Maternal exposure during pregnancy
     Dosage: 10 MILLIGRAM, ONCE A DAY
     Route: 064
     Dates: start: 20150906

REACTIONS (2)
  - Neonatal infection [Recovered/Resolved]
  - Foetal exposure during pregnancy [Unknown]

NARRATIVE: CASE EVENT DATE: 20231001
